FAERS Safety Report 6653044-3 (Version None)
Quarter: 2010Q1

REPORT INFORMATION
  Report Type: 
  Country: None (occurrence: None)
  Receive Date: 20100326
  Receipt Date: 20100317
  Transmission Date: 20100710
  Serious: Yes (Other)
  Sender: FDA-Public Use
  Company Number: PHHY2010AU14885

PATIENT
  Sex: Female

DRUGS (9)
  1. ACLASTA [Suspect]
     Dosage: UNK
     Dates: start: 20100311
  2. LIPITOR [Concomitant]
     Dosage: 40
     Route: 048
  3. MOBIC [Concomitant]
     Dosage: 15
     Route: 048
  4. NEXIUM [Concomitant]
     Dosage: 20
     Route: 048
  5. VESICARE [Concomitant]
  6. PANAMAX [Concomitant]
  7. PREDNISOLON [Concomitant]
  8. SALOFALK [Concomitant]
  9. TEMAZE [Concomitant]

REACTIONS (5)
  - ARTHRALGIA [None]
  - JOINT STIFFNESS [None]
  - LIMB DISCOMFORT [None]
  - OEDEMA PERIPHERAL [None]
  - OSTEOARTHRITIS [None]
